FAERS Safety Report 12383793 (Version 1)
Quarter: 2016Q2

REPORT INFORMATION
  Report Type: Spontaneous
  Country: TR (occurrence: TR)
  Receive Date: 20160519
  Receipt Date: 20160519
  Transmission Date: 20160815
  Serious: Yes (Hospitalization, Other)
  Sender: FDA-Public Use
  Company Number: TR-GLENMARK PHARMACEUTICALS INC, USA.-2016GMK022872

PATIENT
  Age: 24 Year
  Sex: Female

DRUGS (2)
  1. ORNIDAZOLE [Suspect]
     Active Substance: ORNIDAZOLE
     Indication: VAGINAL INFECTION
     Dosage: 1500 MG, QD
  2. FLUCONAZOLE. [Suspect]
     Active Substance: FLUCONAZOLE
     Indication: VAGINAL INFECTION
     Dosage: 150 MG, QD

REACTIONS (3)
  - Coagulation test abnormal [Recovered/Resolved]
  - Ascites [Unknown]
  - Hepatitis acute [Recovered/Resolved]
